FAERS Safety Report 18867650 (Version 1)
Quarter: 2021Q1

REPORT INFORMATION
  Report Type: Spontaneous
  Country: US (occurrence: US)
  Receive Date: 20210209
  Receipt Date: 20210209
  Transmission Date: 20210420
  Serious: Yes (Other)
  Sender: FDA-Public Use
  Company Number: US-SA-2021SA039998

PATIENT
  Age: 76 Year
  Sex: Male

DRUGS (2)
  1. DUPIXENT [Suspect]
     Active Substance: DUPILUMAB
     Indication: OSTEOPOROSIS
  2. DUPIXENT [Suspect]
     Active Substance: DUPILUMAB
     Indication: OSTEOARTHRITIS
     Dosage: UNK
     Route: 058
     Dates: start: 202003, end: 202003

REACTIONS (2)
  - Product use in unapproved indication [Unknown]
  - Chronic kidney disease [Unknown]

NARRATIVE: CASE EVENT DATE: 202003
